FAERS Safety Report 9214418 (Version 1)
Quarter: 2013Q2

REPORT INFORMATION
  Report Type: Spontaneous
  Country: CN (occurrence: CN)
  Receive Date: 20130405
  Receipt Date: 20130405
  Transmission Date: 20140414
  Serious: Yes (Other)
  Sender: FDA-Public Use
  Company Number: CN-ROCHE-1206264

PATIENT
  Age: 48 Year
  Sex: Male

DRUGS (2)
  1. AVASTIN [Suspect]
     Indication: GLAUCOMA
     Route: 050
     Dates: start: 20120131
  2. AVASTIN [Suspect]
     Indication: OFF LABEL USE

REACTIONS (1)
  - Hypertension [Recovered/Resolved]
